FAERS Safety Report 14115944 (Version 1)
Quarter: 2017Q4

REPORT INFORMATION
  Report Type: Spontaneous
  Country: FR (occurrence: FR)
  Receive Date: 20171023
  Receipt Date: 20171023
  Transmission Date: 20180321
  Serious: Yes (Hospitalization)
  Sender: FDA-Public Use
  Company Number: FR-PFIZER INC-2017451222

PATIENT
  Age: 33 Year
  Sex: Female

DRUGS (1)
  1. SOLU-MEDROL [Suspect]
     Active Substance: METHYLPREDNISOLONE SODIUM SUCCINATE
     Indication: MYELITIS
     Dosage: 1 G, 3 BOLUS
     Route: 040
     Dates: start: 20170923, end: 20170926

REACTIONS (5)
  - Posterior reversible encephalopathy syndrome [Recovered/Resolved]
  - Hypertension [Recovered/Resolved]
  - Epilepsy [Recovered/Resolved]
  - Intracranial pressure increased [Recovered/Resolved]
  - Blindness cortical [Recovered/Resolved]

NARRATIVE: CASE EVENT DATE: 20170927
